FAERS Safety Report 8512602-1 (Version None)
Quarter: 2012Q3

REPORT INFORMATION
  Report Type: 
  Country: None (occurrence: None)
  Receive Date: 20120716
  Receipt Date: 20120702
  Transmission Date: 20120928
  Serious: Yes (Life-Threatening, Hospitalization)
  Sender: FDA-Public Use
  Company Number: US-VIROPHARMA INCORPORATED-20120702CINRY3107

PATIENT
  Sex: Female
  Weight: 64.014 kg

DRUGS (3)
  1. UNSPECIFIED SEIZURE MEDICATION [Concomitant]
     Indication: CONVULSION
     Dosage: UNKNOWN
     Route: 065
  2. CINRYZE [Suspect]
     Indication: HEREDITARY ANGIOEDEMA
     Dates: start: 20120327
  3. FIRAZYR [Concomitant]
     Indication: HEREDITARY ANGIOEDEMA
     Dosage: UNKNOWN
     Route: 065

REACTIONS (5)
  - BLOOD POTASSIUM ABNORMAL [None]
  - HEREDITARY ANGIOEDEMA [None]
  - ANAPHYLACTIC REACTION [None]
  - PRODUCT QUALITY ISSUE [None]
  - THERAPY REGIMEN CHANGED [None]
